FAERS Safety Report 4694844-9 (Version None)
Quarter: 2005Q2

REPORT INFORMATION
  Report Type: 
  Country: None (occurrence: None)
  Receive Date: 20050617
  Receipt Date: 20050606
  Transmission Date: 20051028
  Serious: Yes (Other)
  Sender: FDA-Public Use
  Company Number: 2004118811

PATIENT
  Age: 62 Year
  Sex: Male

DRUGS (8)
  1. CELEBREX [Suspect]
     Indication: ARTHRITIS
     Dosage: 200 MG 1 IN 1 D, ORAL
     Route: 048
  2. VIOXX [Suspect]
     Indication: ARTHRITIS
  3. HYDROCHLOROTHIAZIDE [Concomitant]
  4. ATENOLOL [Concomitant]
  5. ARICEPT [Concomitant]
  6. ACIPHEX [Concomitant]
  7. VICODIN [Concomitant]
  8. ATACAND [Concomitant]

REACTIONS (3)
  - DRUG INEFFECTIVE [None]
  - EXOSTOSIS [None]
  - SURGERY [None]
